FAERS Safety Report 7752412 (Version 2)
Quarter: 2012Q4

REPORT INFORMATION
  Report Type: 
  Country: US (occurrence: US)
  Receive Date: 20110107
  Receipt Date: 20120928
  Transmission Date: 20130627
  Serious: Yes (Death)
  Sender: FDA-Public Use
  Company Number: US-MYLANLABS-2010S1023752

PATIENT
  Age: 27 Year
  Sex: Male
  Weight: 99.79 kg

DRUGS (8)
  1. FENTANYL TRANSDERMAL SYSTEM [Suspect]
     Indication: PAIN
     Route: 062
     Dates: start: 2008, end: 20081116
  2. AMITRIPTYLINE [Suspect]
  3. ENDOCET [Suspect]
  4. PROZAC [Concomitant]
  5. ZOLPIDEM [Concomitant]
  6. MIDRIN [Concomitant]
     Dosage: Take twice/hour, without exceeding 5 per a 12-hour period.
  7. CARISOPRODOL [Concomitant]
  8. IBUPROFEN [Concomitant]

REACTIONS (2)
  - Toxicity to various agents [Fatal]
  - Loss of consciousness [None]
